FAERS Safety Report 10086895 (Version 2)
Quarter: 2014Q2

REPORT INFORMATION
  Report Type: Spontaneous
  Country: CH (occurrence: CH)
  Receive Date: 20140418
  Receipt Date: 20140424
  Transmission Date: 20141212
  Serious: Yes (Hospitalization, Other)
  Sender: FDA-Public Use
  Company Number: PHHY2014CH045428

PATIENT
  Age: 75 Year
  Sex: Male

DRUGS (12)
  1. PREDNISONE [Suspect]
     Indication: WALDENSTROM^S MACROGLOBULINAEMIA
     Dates: start: 2006
  2. PREDNISONE [Suspect]
     Dates: start: 2007
  3. FLUDARABINE [Suspect]
     Dates: start: 2006
  4. FLUDARABINE [Suspect]
     Dates: start: 2009
  5. DOXORUBICIN [Suspect]
     Indication: HODGKIN^S DISEASE
  6. BLEOMYCIN [Suspect]
     Indication: HODGKIN^S DISEASE
  7. VINBLASTINE [Suspect]
     Indication: HODGKIN^S DISEASE
  8. DACARBAZINE [Suspect]
     Indication: HODGKIN^S DISEASE
  9. RITUXIMAB [Suspect]
     Dates: start: 2006
  10. RITUXIMAB [Suspect]
     Dates: start: 2009
  11. CHLORAMBUCIL [Suspect]
     Indication: WALDENSTROM^S MACROGLOBULINAEMIA
     Dates: start: 2006
  12. CYCLOPHOSPHAMIDE [Suspect]
     Indication: IMMUNE THROMBOCYTOPENIC PURPURA
     Dates: start: 2007

REACTIONS (6)
  - Rhodococcus infection [Recovered/Resolved]
  - Hypogammaglobulinaemia [Unknown]
  - Pneumonia [Recovered/Resolved]
  - Pyrexia [Recovered/Resolved]
  - Cough [Recovered/Resolved]
  - General physical health deterioration [Recovered/Resolved]
